FAERS Safety Report 4807224-X (Version None)
Quarter: 2005Q4

REPORT INFORMATION
  Report Type: 
  Country: None (occurrence: None)
  Receive Date: 20051020
  Receipt Date: 20051020
  Transmission Date: 20060501
  Serious: Yes (Life-Threatening, Hospitalization)
  Sender: FDA-Public Use
  Company Number: None

PATIENT
  Age: 61 Year
  Sex: Male
  Weight: 113.4 kg

DRUGS (3)
  1. HYDROCHLOROTHIAZIDE [Suspect]
  2. ENALAPRIL MALEATE [Concomitant]
  3. SILDENAFIL CITRATE [Concomitant]

REACTIONS (2)
  - RESPIRATORY TRACT CONGESTION [None]
  - SWOLLEN TONGUE [None]
